FAERS Safety Report 22271779 (Version 4)
Quarter: 2025Q3

REPORT INFORMATION
  Report Type: Report from Study
  Country: US (occurrence: US)
  Receive Date: 20230502
  Receipt Date: 20250905
  Transmission Date: 20251021
  Serious: No
  Sender: NOVARTIS
  Company Number: US-002147023-NVSC2023US096566

PATIENT
  Sex: Female

DRUGS (13)
  1. COSENTYX [Suspect]
     Active Substance: SECUKINUMAB
     Indication: Psoriasis
     Route: 050
  2. METHOTREXATE [Suspect]
     Active Substance: METHOTREXATE
     Indication: Psoriasis
     Route: 065
  3. METHOTREXATE [Suspect]
     Active Substance: METHOTREXATE
     Route: 065
  4. METHOTREXATE [Suspect]
     Active Substance: METHOTREXATE
     Route: 065
  5. METHOTREXATE [Suspect]
     Active Substance: METHOTREXATE
     Route: 065
  6. SUMATRIPTAN [Suspect]
     Active Substance: SUMATRIPTAN
     Indication: Product used for unknown indication
     Route: 065
  7. SIMVASTATIN [Suspect]
     Active Substance: SIMVASTATIN
     Indication: Product used for unknown indication
     Route: 048
  8. METRONIDAZOLE [Suspect]
     Active Substance: METRONIDAZOLE
     Indication: Product used for unknown indication
     Route: 048
  9. KETOCONAZOLE [Suspect]
     Active Substance: KETOCONAZOLE
     Indication: Psoriasis
     Route: 061
  10. BETAMETHASONE [Suspect]
     Active Substance: BETAMETHASONE
     Indication: Psoriasis
     Route: 061
  11. TRETINOIN [Suspect]
     Active Substance: TRETINOIN
     Indication: Psoriasis
     Route: 061
  12. FOLIC ACID [Suspect]
     Active Substance: FOLIC ACID
     Indication: Psoriasis
     Route: 048
  13. CALCIPOTRIENE AND BETAMETHASONE DIPROPIONATE [Suspect]
     Active Substance: BETAMETHASONE DIPROPIONATE\CALCIPOTRIENE
     Indication: Psoriasis
     Route: 065

REACTIONS (21)
  - Skin haemorrhage [Unknown]
  - Seborrhoeic keratosis [Unknown]
  - Hypoacusis [Unknown]
  - Abdominal discomfort [Unknown]
  - Scab [Unknown]
  - Papule [Unknown]
  - Rash erythematous [Unknown]
  - Arthralgia [Unknown]
  - Dry skin [Unknown]
  - Headache [Unknown]
  - Pain [Unknown]
  - Skin abrasion [Unknown]
  - Skin lesion [Unknown]
  - Alopecia [Unknown]
  - Nausea [Unknown]
  - Oral contusion [Unknown]
  - Acne [Unknown]
  - Nail disorder [Unknown]
  - Photodermatosis [Unknown]
  - Psoriasis [Unknown]
  - Treatment failure [Unknown]
